FAERS Safety Report 20910588 (Version 1)
Quarter: 2022Q2

REPORT INFORMATION
  Report Type: Spontaneous
  Country: FR (occurrence: FR)
  Receive Date: 20220603
  Receipt Date: 20220603
  Transmission Date: 20220721
  Serious: Yes (Other)
  Sender: FDA-Public Use
  Company Number: FR-PIRAMAL PHARMA LIMITED-2022-PEL-000260

PATIENT

DRUGS (17)
  1. SEVOFLURANE [Suspect]
     Active Substance: SEVOFLURANE
     Indication: Maintenance of anaesthesia
     Dosage: 1.5 - 3.5 PERCENT
     Route: 065
  2. REMIFENTANIL [Suspect]
     Active Substance: REMIFENTANIL
     Indication: Product used for unknown indication
     Dosage: 2.0 TO 4.4 NG/ML
     Route: 065
  3. PROPOFOL [Suspect]
     Active Substance: PROPOFOL
     Indication: General anaesthesia
     Dosage: 3 MILLIGRAM/KILOGRAM
     Route: 065
  4. KETAMINE [Suspect]
     Active Substance: KETAMINE
     Indication: Hyperaesthesia
     Dosage: 0.2 MILLIGRAM/KILOGRAM
     Route: 065
  5. ROCURONIUM [Suspect]
     Active Substance: ROCURONIUM BROMIDE
     Indication: General anaesthesia
     Dosage: 0.6 MICROGRAM
     Route: 065
  6. ROCURONIUM [Suspect]
     Active Substance: ROCURONIUM BROMIDE
     Dosage: 1.2 MILLIGRAM/KILOGRAM
     Route: 065
  7. ROCURONIUM [Suspect]
     Active Substance: ROCURONIUM BROMIDE
     Dosage: 110 M
     Route: 065
  8. DEXTROSE [Concomitant]
     Active Substance: DEXTROSE
     Indication: Fluid replacement
     Dosage: 1500 MILLILITER
     Route: 042
  9. SODIUM CHLORIDE [Concomitant]
     Active Substance: SODIUM CHLORIDE
     Indication: Fluid replacement
     Dosage: 1000 MILLILITER
     Route: 042
  10. ACETAMINOPHEN [Concomitant]
     Active Substance: ACETAMINOPHEN
     Indication: Postoperative analgesia
     Dosage: 1 GRAM
     Route: 042
  11. NEFOPAM [Concomitant]
     Active Substance: NEFOPAM
     Indication: Postoperative analgesia
     Dosage: 20 MILLIGRAM
     Route: 042
  12. MORPHINE [Concomitant]
     Active Substance: MORPHINE
     Indication: Postoperative analgesia
     Dosage: 9 MILLIGRAM
     Route: 042
  13. DROPERIDOL [Concomitant]
     Active Substance: DROPERIDOL
     Indication: Prophylaxis of nausea and vomiting
     Dosage: 1.25 MILLIGRAM
     Route: 042
  14. ONDANSETRON [Concomitant]
     Active Substance: ONDANSETRON
     Indication: Prophylaxis of nausea and vomiting
     Dosage: 4 MILLIGRAM
     Route: 042
  15. DEXAMETHASONE [Concomitant]
     Active Substance: DEXAMETHASONE
     Indication: Prophylaxis of nausea and vomiting
     Dosage: 8 MILLIGRAM
     Route: 042
  16. NOREPINEPHRINE [Concomitant]
     Active Substance: NOREPINEPHRINE
     Indication: Hypotension
     Dosage: 5 MICROGRAM PER ML
     Route: 065
  17. SUGAMMADEX [Concomitant]
     Active Substance: SUGAMMADEX
     Indication: Muscle twitching
     Dosage: 2 MILLIGRAM/KILOGRAM
     Route: 042

REACTIONS (1)
  - Hypotension [Unknown]
